FAERS Safety Report 13447613 (Version 1)
Quarter: 2017Q2

REPORT INFORMATION
  Report Type: Spontaneous
  Country: JP (occurrence: JP)
  Receive Date: 20170417
  Receipt Date: 20170417
  Transmission Date: 20170830
  Serious: Yes (Hospitalization, Other)
  Sender: FDA-Public Use
  Company Number: JP-GLAXOSMITHKLINE-JP2017JPN051660

PATIENT
  Age: 30 Year
  Sex: Female

DRUGS (6)
  1. MACITENTAN [Concomitant]
     Active Substance: MACITENTAN
     Dosage: UNK
  2. BERAPROST SODIUM [Concomitant]
     Active Substance: BERAPROST SODIUM
     Dosage: UNK
  3. FLOLAN [Suspect]
     Active Substance: EPOPROSTENOL SODIUM
     Indication: PULMONARY ARTERIAL HYPERTENSION
     Dosage: UNK
     Route: 042
  4. BOSENTAN HYDRATE [Concomitant]
     Dosage: UNK
  5. TADALAFIL [Concomitant]
     Active Substance: TADALAFIL
     Dosage: UNK
  6. SILDENAFIL CITRATE. [Concomitant]
     Active Substance: SILDENAFIL CITRATE
     Dosage: UNK

REACTIONS (8)
  - Basedow^s disease [Unknown]
  - Hyperthyroidism [Unknown]
  - Device related infection [Unknown]
  - Weight decreased [Unknown]
  - Palpitations [Recovering/Resolving]
  - Malaise [Unknown]
  - Myalgia [Unknown]
  - Tachycardia [Recovering/Resolving]
